FAERS Safety Report 10580906 (Version 1)
Quarter: 2014Q4

REPORT INFORMATION
  Report Type: Spontaneous
  Country: FR (occurrence: None)
  Receive Date: 20141110
  Receipt Date: 20141110
  Transmission Date: 20150529
  Serious: Yes (Hospitalization)
  Sender: FDA-Public Use
  Company Number: 2014267100

PATIENT
  Age: 91 Year
  Sex: Male

DRUGS (8)
  1. PERMIXON [Suspect]
     Active Substance: SAW PALMETTO
     Route: 048
  2. TRIATEC [Suspect]
     Active Substance: RAMIPRIL
     Route: 048
  3. LASILIX [Suspect]
     Active Substance: FUROSEMIDE
     Indication: CARDIAC FAILURE
     Route: 048
     Dates: start: 20140507
  4. DIFFU K [Suspect]
     Active Substance: POTASSIUM CHLORIDE
     Route: 048
  5. FRAGMINE (DALTEPARIN SODIUM) SOLUTION FOR INJECTION [Suspect]
     Active Substance: DALTEPARIN SODIUM
     Route: 058
     Dates: start: 20140508
  6. CARDENSIEL [Suspect]
     Active Substance: BISOPROLOL FUMARATE
     Route: 048
  7. SPECIAFOLDINE [Suspect]
     Active Substance: FOLIC ACID
     Route: 048
  8. TARDYFERON [Suspect]
     Active Substance: FERROUS SULFATE\FOLIC ACID
     Route: 048

REACTIONS (3)
  - Drug ineffective [None]
  - Cardiac failure [None]
  - Acute kidney injury [None]

NARRATIVE: CASE EVENT DATE: 20140515
